FAERS Safety Report 24997115 (Version 1)
Quarter: 2025Q1

REPORT INFORMATION
  Report Type: Spontaneous
  Country: FR (occurrence: FR)
  Receive Date: 20250221
  Receipt Date: 20250221
  Transmission Date: 20250408
  Serious: Yes (Other)
  Sender: VERTEX
  Company Number: None

PATIENT
  Age: 6 Year
  Sex: Female

DRUGS (5)
  1. ELEXACAFTOR\IVACAFTOR\TEZACAFTOR [Suspect]
     Active Substance: ELEXACAFTOR\IVACAFTOR\TEZACAFTOR
     Indication: Cystic fibrosis
     Dosage: 37.5MG IVACAFTOR/25MG TEZACAFTOR/50MG ELEXACAFTOR
     Route: 048
     Dates: start: 20230926, end: 20240107
  2. ELEXACAFTOR\IVACAFTOR\TEZACAFTOR [Suspect]
     Active Substance: ELEXACAFTOR\IVACAFTOR\TEZACAFTOR
     Route: 048
     Dates: start: 20240402, end: 20241211
  3. ELEXACAFTOR\IVACAFTOR\TEZACAFTOR [Suspect]
     Active Substance: ELEXACAFTOR\IVACAFTOR\TEZACAFTOR
     Route: 048
     Dates: start: 20241212
  4. KALYDECO [Suspect]
     Active Substance: IVACAFTOR
     Indication: Cystic fibrosis
     Route: 048
     Dates: start: 20230926, end: 20240107
  5. KALYDECO [Suspect]
     Active Substance: IVACAFTOR
     Dosage: 1 TAB PER DAY
     Route: 048
     Dates: start: 20240402, end: 20241211

REACTIONS (2)
  - Arthralgia [Recovering/Resolving]
  - Hypochloraemia [Not Recovered/Not Resolved]

NARRATIVE: CASE EVENT DATE: 20240711
